FAERS Safety Report 5727526-2 (Version None)
Quarter: 2008Q2

REPORT INFORMATION
  Report Type: 
  Country: None (occurrence: None)
  Receive Date: 20080430
  Receipt Date: 20080416
  Transmission Date: 20081010
  Serious: Yes (Hospitalization)
  Sender: FDA-Public Use
  Company Number: 1022556-2008-00535

PATIENT
  Sex: Female

DRUGS (2)
  1. KAOPECTATE PEPPERMINT LIQUID [Suspect]
     Indication: DIARRHOEA
  2. BISMUTH SUBSALICYLATE = 524 MG/DOSE [Suspect]

REACTIONS (2)
  - DEHYDRATION [None]
  - DRUG INEFFECTIVE [None]
